FAERS Safety Report 5163890-3 (Version None)
Quarter: 2006Q4

REPORT INFORMATION
  Report Type: 
  Country: None (occurrence: None)
  Receive Date: 20061204
  Receipt Date: 20001205
  Transmission Date: 20070319
  Serious: Yes (Hospitalization)
  Sender: FDA-Public Use
  Company Number: 10636355

PATIENT
  Age: 24 Hour
  Sex: Male
  Weight: 2 kg

DRUGS (7)
  1. ZERIT [Suspect]
     Dosage: GIVEN FROM 11 TO 26 WEEKS GESTATION
     Route: 064
  2. VIDEX [Suspect]
     Dosage: NOT REPORTED
  3. RETROVIR [Suspect]
     Dosage: GIVEN FROM 28 WEEKS OF GESTATION AND RECEIVED FOR 6 WEEKS AFTER DELIVERY
     Route: 064
     Dates: start: 19990827, end: 19990827
  4. COMBIVIR [Suspect]
     Dosage: GIVEN UNTIL 11 WEEKS GESTATION
     Route: 064
  5. AGENERASE [Suspect]
     Dosage: GIVEN UNTIL 4 WEEKS GESTATION
     Route: 064
  6. VITAMINS [Concomitant]
  7. IRON [Concomitant]

REACTIONS (7)
  - ANAEMIA [None]
  - BLOOD LACTIC ACID INCREASED [None]
  - BLOOD TRIGLYCERIDES INCREASED [None]
  - NEUTROPENIA [None]
  - PLATELET COUNT INCREASED [None]
  - PREGNANCY [None]
  - PREMATURE BABY [None]
